FAERS Safety Report 16683619 (Version 1)
Quarter: 2019Q3

REPORT INFORMATION
  Report Type: Spontaneous
  Country: US (occurrence: US)
  Receive Date: 20190808
  Receipt Date: 20190808
  Transmission Date: 20191004
  Serious: No
  Sender: FDA-Public Use
  Company Number: US-ALLERGAN-1927512US

PATIENT
  Age: 53 Year
  Sex: Male

DRUGS (2)
  1. ANDRODERM [Suspect]
     Active Substance: TESTOSTERONE
     Dosage: 1 DF, QD
     Route: 062
     Dates: start: 2018
  2. ANDRODERM [Suspect]
     Active Substance: TESTOSTERONE
     Indication: BLOOD TESTOSTERONE DECREASED
     Dosage: 1 DF, QD
     Route: 062
     Dates: start: 2019

REACTIONS (9)
  - Application site pruritus [Recovering/Resolving]
  - Application site rash [Recovering/Resolving]
  - Application site irritation [Recovering/Resolving]
  - Administration site induration [Recovering/Resolving]
  - Application site swelling [Recovering/Resolving]
  - Application site pain [Recovering/Resolving]
  - Application site erythema [Recovering/Resolving]
  - Application site scar [Recovering/Resolving]
  - Product dose omission [Unknown]

NARRATIVE: CASE EVENT DATE: 2018
